FAERS Safety Report 26075067 (Version 1)
Quarter: 2025Q4

REPORT INFORMATION
  Report Type: Other
  Country: US (occurrence: US)
  Receive Date: 20251121
  Receipt Date: 20251121
  Transmission Date: 20260118
  Serious: No
  Sender: VERASTEM
  Company Number: US-VERASTEM-250813US-AFCPK-00450

PATIENT

DRUGS (1)
  1. AVMAPKI FAKZYNJA CO-PACK [Suspect]
     Active Substance: AVUTOMETINIB POTASSIUM\DEFACTINIB HYDROCHLORIDE
     Indication: Ovarian cancer
     Dosage: TAKE AS DIRECTED PER DOSING CARD
     Route: 048
     Dates: start: 20250728

REACTIONS (10)
  - Liver disorder [Unknown]
  - Tremor [Not Recovered/Not Resolved]
  - Pain [Unknown]
  - Asthenia [Recovering/Resolving]
  - Dizziness [Recovering/Resolving]
  - Diarrhoea [Recovered/Resolved]
  - Acne [Not Recovered/Not Resolved]
  - Dry eye [Recovering/Resolving]
  - Dyspnoea [Unknown]
  - Pruritus [Unknown]
